FAERS Safety Report 25962772 (Version 1)
Quarter: 2025Q4

REPORT INFORMATION
  Report Type: Spontaneous
  Country: US (occurrence: None)
  Receive Date: 20251025
  Receipt Date: 20251025
  Transmission Date: 20260118
  Serious: Yes (Other)
  Sender: FDA-CTU
  Company Number: None

PATIENT
  Age: 31 Year
  Sex: Female
  Weight: 99.9 kg

DRUGS (1)
  1. SULFAMETHOXAZOLE\TRIMETHOPRIM [Suspect]
     Active Substance: SULFAMETHOXAZOLE\TRIMETHOPRIM
     Indication: Urinary tract infection
     Dates: start: 20251022, end: 20251023

REACTIONS (5)
  - Rash [None]
  - Rash [None]
  - Lip swelling [None]
  - Oral mucosal blistering [None]
  - Swollen tongue [None]

NARRATIVE: CASE EVENT DATE: 20251023
